FAERS Safety Report 4906867-2 (Version None)
Quarter: 2006Q1

REPORT INFORMATION
  Report Type: 
  Country: None (occurrence: None)
  Receive Date: 20060209
  Receipt Date: 20060127
  Transmission Date: 20060701
  Serious: Yes (Other)
  Sender: FDA-Public Use
  Company Number: PHNU2006DE00696

PATIENT
  Sex: Female

DRUGS (3)
  1. DIOVAN HCT [Suspect]
     Dates: start: 20030101
  2. AMLODIPINE [Suspect]
     Dates: end: 20060101
  3. METOPROLOL [Concomitant]

REACTIONS (1)
  - GINGIVAL HYPERPLASIA [None]
